FAERS Safety Report 19416507 (Version 1)
Quarter: 2021Q2

REPORT INFORMATION
  Report Type: Spontaneous
  Country: SG (occurrence: SG)
  Receive Date: 20210614
  Receipt Date: 20210614
  Transmission Date: 20210717
  Serious: Yes (Other)
  Sender: FDA-Public Use
  Company Number: SG-FRESENIUS KABI-FK202105997

PATIENT
  Age: 34 Year
  Sex: Female

DRUGS (7)
  1. OXYTOCIN INJECTION (MANUFACTURER UNKNOWN) [Suspect]
     Active Substance: OXYTOCIN
     Indication: PRODUCT USED FOR UNKNOWN INDICATION
     Route: 040
  2. FENTANYL. [Suspect]
     Active Substance: FENTANYL
     Indication: SPINAL ANAESTHESIA
     Route: 037
  3. EPHEDRINE. [Suspect]
     Active Substance: EPHEDRINE
     Indication: BLOOD PRESSURE MANAGEMENT
     Route: 065
  4. MORPHINE SULFATE INJECTION (MANUFACTURER UNKNOWN) [Suspect]
     Active Substance: MORPHINE SULFATE
     Indication: SPINAL ANAESTHESIA
     Route: 037
  5. PHENYLEPHRINE [Suspect]
     Active Substance: PHENYLEPHRINE HYDROCHLORIDE
     Indication: BLOOD PRESSURE MANAGEMENT
     Route: 065
  6. OXYTOCIN INJECTION (MANUFACTURER UNKNOWN) [Suspect]
     Active Substance: OXYTOCIN
     Dosage: ADDED TO THE INTRAVENOUS CRYSTALLOID INFUSION
     Route: 040
  7. BUPIVACAINE (MANUFACTURER UNKNOWN) [Suspect]
     Active Substance: BUPIVACAINE
     Indication: SPINAL ANAESTHESIA
     Route: 037

REACTIONS (4)
  - Cerebrovascular accident [Recovering/Resolving]
  - Pituitary apoplexy [Recovering/Resolving]
  - Exposure during pregnancy [Recovered/Resolved]
  - Reversible cerebral vasoconstriction syndrome [Recovering/Resolving]
